FAERS Safety Report 22068534 (Version 1)
Quarter: 2023Q1

REPORT INFORMATION
  Report Type: Spontaneous
  Country: US (occurrence: US)
  Receive Date: 20230307
  Receipt Date: 20230307
  Transmission Date: 20230417
  Serious: Yes (Hospitalization)
  Sender: FDA-Public Use
  Company Number: US-SA-SAC20230306001349

PATIENT
  Age: 7 Year
  Sex: Male

DRUGS (1)
  1. FABRAZYME [Suspect]
     Active Substance: AGALSIDASE BETA
     Dosage: 25 MG, QOW
     Route: 042
     Dates: start: 20221201

REACTIONS (1)
  - Escherichia infection [Unknown]

NARRATIVE: CASE EVENT DATE: 20230215
